FAERS Safety Report 17982110 (Version 1)
Quarter: 2020Q3

REPORT INFORMATION
  Report Type: Spontaneous
  Country: RU (occurrence: RU)
  Receive Date: 20200706
  Receipt Date: 20200706
  Transmission Date: 20201103
  Serious: Yes (Death)
  Sender: FDA-Public Use
  Company Number: RU-BIOVITRUM-2020RU3459

PATIENT
  Age: 6 Month

DRUGS (1)
  1. ANAKINRA [Suspect]
     Active Substance: ANAKINRA
     Indication: BACILLE CALMETTE-GUERIN SCAR REACTIVATION
     Dosage: 10 MG/KG

REACTIONS (4)
  - Cytomegalovirus infection [Fatal]
  - Off label use [Unknown]
  - Pneumonia [Fatal]
  - Norovirus test positive [Fatal]
